FAERS Safety Report 18987365 (Version 1)
Quarter: 2021Q1

REPORT INFORMATION
  Report Type: Spontaneous
  Country: CA (occurrence: CA)
  Receive Date: 20210309
  Receipt Date: 20210309
  Transmission Date: 20210420
  Serious: Yes (Other)
  Sender: FDA-Public Use
  Company Number: CA-IGSA-GTI003334

PATIENT
  Age: 75 Year
  Sex: Female
  Weight: 44 kg

DRUGS (23)
  1. AZARGA [Concomitant]
     Active Substance: BRINZOLAMIDE\TIMOLOL MALEATE
     Dosage: UNK
  2. PROLASTIN?C [Suspect]
     Active Substance: .ALPHA.1-PROTEINASE INHIBITOR HUMAN
     Dosage: UNK
     Route: 042
     Dates: start: 20130828
  3. SYNTHROID [Concomitant]
     Active Substance: LEVOTHYROXINE SODIUM
     Dosage: 0 MG, UNK
  4. PROLASTIN?C [Suspect]
     Active Substance: .ALPHA.1-PROTEINASE INHIBITOR HUMAN
     Indication: ALPHA-1 ANTITRYPSIN DEFICIENCY
     Dosage: 2400 MG, Q.WK.
     Route: 042
     Dates: start: 20150623
  5. PROLASTIN?C [Suspect]
     Active Substance: .ALPHA.1-PROTEINASE INHIBITOR HUMAN
     Dosage: 2400 MG, Q.WK.
     Route: 042
     Dates: start: 20150618
  6. PROLASTIN?C [Suspect]
     Active Substance: .ALPHA.1-PROTEINASE INHIBITOR HUMAN
     Dosage: UNK UNK, Q.WK.
     Route: 042
     Dates: start: 20150714
  7. PROLASTIN?C [Suspect]
     Active Substance: .ALPHA.1-PROTEINASE INHIBITOR HUMAN
     Dosage: 2400 UNK, Q.WK.
     Route: 042
     Dates: start: 20141210, end: 20151117
  8. HYDROCHLOROTHIAZIDE. [Concomitant]
     Active Substance: HYDROCHLOROTHIAZIDE
     Dosage: 35 MG, UNK
  9. RIFADIN [Concomitant]
     Active Substance: RIFAMPIN
     Dosage: UNK
  10. EPTAVIT [Concomitant]
     Active Substance: CALCIUM CARBONATE\CHOLECALCIFEROL
     Dosage: UNK
  11. HYDROCHLOROTHIAZIDE. [Concomitant]
     Active Substance: HYDROCHLOROTHIAZIDE
     Dosage: UNK
  12. PROLASTIN?C [Suspect]
     Active Substance: .ALPHA.1-PROTEINASE INHIBITOR HUMAN
     Dosage: UNK UNK, Q.WK.
     Route: 042
     Dates: start: 20151006
  13. SALBUTAMOL [Concomitant]
     Active Substance: ALBUTEROL
     Dosage: 2.5 ML, UNK
     Route: 055
  14. TOBRAMYCIN. [Concomitant]
     Active Substance: TOBRAMYCIN
     Dosage: 2 ML, UNK
     Route: 055
  15. AZITHROMYCIN ANHYDROUS. [Concomitant]
     Active Substance: AZITHROMYCIN ANHYDROUS
     Dosage: UNK
  16. RISEDRONATE [Concomitant]
     Active Substance: RISEDRONATE SODIUM
     Dosage: UNK
  17. PROLASTIN?C [Suspect]
     Active Substance: .ALPHA.1-PROTEINASE INHIBITOR HUMAN
     Dosage: UNK UNK, Q.WK.
     Route: 042
     Dates: start: 20141212
  18. PROLASTIN?C [Suspect]
     Active Substance: .ALPHA.1-PROTEINASE INHIBITOR HUMAN
     Dosage: UNK UNK, Q.WK.
     Route: 042
  19. RIVA K [Concomitant]
     Dosage: 20 MG, UNK
  20. PROLASTIN?C [Suspect]
     Active Substance: .ALPHA.1-PROTEINASE INHIBITOR HUMAN
     Dosage: UNK UNK, Q.WK.
     Route: 042
     Dates: start: 20150703
  21. PROLASTIN?C [Suspect]
     Active Substance: .ALPHA.1-PROTEINASE INHIBITOR HUMAN
     Dosage: UNK UNK, Q.WK.
     Route: 042
     Dates: start: 20150707
  22. PROLASTIN?C [Suspect]
     Active Substance: .ALPHA.1-PROTEINASE INHIBITOR HUMAN
     Dosage: UNK UNK, Q.WK.
     Route: 042
     Dates: start: 20150908
  23. JAMP VITAMINES A D C [Concomitant]
     Dosage: UNK

REACTIONS (12)
  - Haemoptysis [Not Recovered/Not Resolved]
  - Heart rate increased [Unknown]
  - Productive cough [Not Recovered/Not Resolved]
  - Blood pressure abnormal [Recovered/Resolved]
  - Musculoskeletal pain [Recovered/Resolved]
  - Drug ineffective [Not Recovered/Not Resolved]
  - Cough [Recovered/Resolved]
  - Discomfort [Unknown]
  - Palpitations [Unknown]
  - General physical health deterioration [Recovering/Resolving]
  - Blood pressure increased [Recovering/Resolving]
  - Pain [Unknown]

NARRATIVE: CASE EVENT DATE: 20141210
